FAERS Safety Report 25221403 (Version 1)
Quarter: 2025Q2

REPORT INFORMATION
  Report Type: Spontaneous
  Country: US (occurrence: None)
  Receive Date: 20250421
  Receipt Date: 20250421
  Transmission Date: 20250716
  Serious: Yes (Other)
  Sender: FDA-CTU
  Company Number: None

PATIENT
  Age: 72 Year
  Sex: Female
  Weight: 49.4 kg

DRUGS (1)
  1. PROHANCE [Suspect]
     Active Substance: GADOTERIDOL

REACTIONS (4)
  - Dyspnoea [None]
  - Contrast media reaction [None]
  - Pulse absent [None]
  - Blood pressure immeasurable [None]

NARRATIVE: CASE EVENT DATE: 20250318
